FAERS Safety Report 22605848 (Version 2)
Quarter: 2023Q2

REPORT INFORMATION
  Report Type: Report from Study
  Country: US (occurrence: US)
  Receive Date: 20230615
  Receipt Date: 20230629
  Transmission Date: 20230721
  Serious: Yes (Hospitalization)
  Sender: FDA-Public Use
  Company Number: US-002147023-NVSC2023US135675

PATIENT
  Age: 60 Year
  Sex: Male

DRUGS (2)
  1. SABATOLIMAB [Suspect]
     Active Substance: SABATOLIMAB
     Indication: Myelodysplastic syndrome
     Dosage: 400 MG, Q2W
     Route: 042
     Dates: start: 20211230, end: 20230606
  2. DECITABINE [Suspect]
     Active Substance: DECITABINE
     Indication: Myelodysplastic syndrome
     Dosage: UNK
     Route: 065
     Dates: start: 202112

REACTIONS (5)
  - Bacteraemia [Unknown]
  - Cholangitis [Unknown]
  - Abdominal pain [Unknown]
  - Dysphagia [Unknown]
  - Pyrexia [Unknown]

NARRATIVE: CASE EVENT DATE: 20230606
